FAERS Safety Report 8133500-1 (Version None)
Quarter: 2012Q1

REPORT INFORMATION
  Report Type: 
  Country: None (occurrence: None)
  Receive Date: 20120213
  Receipt Date: 20120203
  Transmission Date: 20120608
  Serious: Yes (Hospitalization)
  Sender: FDA-Public Use
  Company Number: NL-ABBOTT-12P-114-0901500-00

PATIENT
  Age: 24 Year
  Sex: Male
  Weight: 85 kg

DRUGS (4)
  1. SEVOFLURANE [Suspect]
     Indication: ORTHOPEDIC PROCEDURE
     Dosage: MAC 2
     Route: 055
     Dates: start: 20111026, end: 20111026
  2. SUFENTANIL CITRATE [Concomitant]
     Indication: MAINTENANCE OF ANAESTHESIA
     Route: 042
     Dates: start: 20111026, end: 20111026
  3. PROPAFENOL [Concomitant]
     Indication: MAINTENANCE OF ANAESTHESIA
     Route: 042
     Dates: start: 20111026, end: 20111026
  4. ACETAMINOPHEN [Concomitant]
     Indication: MAINTENANCE OF ANAESTHESIA
     Route: 042
     Dates: start: 20111026, end: 20111026

REACTIONS (2)
  - PULMONARY OEDEMA [None]
  - RESPIRATORY DISTRESS [None]
